FAERS Safety Report 6450365-4 (Version None)
Quarter: 2009Q4

REPORT INFORMATION
  Report Type: 
  Country: None (occurrence: None)
  Receive Date: 20091123
  Receipt Date: 20091116
  Transmission Date: 20100525
  Serious: Yes (Hospitalization)
  Sender: FDA-Public Use
  Company Number: FR-BRISTOL-MYERS SQUIBB COMPANY-14754659

PATIENT
  Age: 45 Year
  Sex: Female

DRUGS (8)
  1. TAXOL [Suspect]
     Indication: BREAST CANCER METASTATIC
     Dosage: RECEIVED TAXOL FOR ATLEAST 6 MONTHS
     Dates: start: 20081201
  2. AVASTIN [Suspect]
     Indication: BREAST CANCER METASTATIC
     Route: 042
     Dates: start: 20081201
  3. RADIOTHERAPY [Suspect]
     Indication: BREAST CANCER METASTATIC
     Dates: start: 20080101
  4. ZOMETA [Concomitant]
  5. APROVEL [Concomitant]
  6. DEROXAT [Concomitant]
  7. BISOPROLOL [Concomitant]
  8. PRAZEPAM [Concomitant]

REACTIONS (1)
  - MYELITIS [None]
